FAERS Safety Report 22229581 (Version 1)
Quarter: 2023Q2

REPORT INFORMATION
  Report Type: Spontaneous
  Country: CA (occurrence: CA)
  Receive Date: 20230419
  Receipt Date: 20230419
  Transmission Date: 20230722
  Serious: Yes (Other)
  Sender: FDA-Public Use
  Company Number: CA-BRISTOL-MYERS SQUIBB COMPANY-2023-055022

PATIENT
  Age: 54 Year
  Sex: Female

DRUGS (8)
  1. ELIQUIS [Suspect]
     Active Substance: APIXABAN
     Indication: Product used for unknown indication
  2. AMPICILLIN [Concomitant]
     Active Substance: AMPICILLIN
     Indication: Product used for unknown indication
  3. CEFTRIAXONE SODIUM [Concomitant]
     Active Substance: CEFTRIAXONE SODIUM
     Indication: Product used for unknown indication
  4. HYDROMORPHONE [Concomitant]
     Active Substance: HYDROMORPHONE
     Indication: Product used for unknown indication
  5. LEVETIRACETAM [Concomitant]
     Active Substance: LEVETIRACETAM
     Indication: Product used for unknown indication
  6. SERTRALINE [Concomitant]
     Active Substance: SERTRALINE HYDROCHLORIDE
     Indication: Product used for unknown indication
  7. TYLENOL [Concomitant]
     Active Substance: ACETAMINOPHEN
     Indication: Product used for unknown indication
  8. VANCOMYCIN [Concomitant]
     Active Substance: VANCOMYCIN
     Indication: Product used for unknown indication

REACTIONS (12)
  - Abdominal pain upper [Recovering/Resolving]
  - Acute respiratory failure [Recovering/Resolving]
  - Arterial haemorrhage [Recovering/Resolving]
  - Hepatic infarction [Recovering/Resolving]
  - Hypoperfusion [Recovering/Resolving]
  - Hypotension [Recovering/Resolving]
  - Infective aneurysm [Recovering/Resolving]
  - Intra-abdominal haematoma [Recovering/Resolving]
  - Renal infarct [Recovering/Resolving]
  - Blood disorder [Recovering/Resolving]
  - Vasculitis [Recovering/Resolving]
  - Vasospasm [Recovering/Resolving]
